FAERS Safety Report 25645988 (Version 5)
Quarter: 2025Q4

REPORT INFORMATION
  Report Type: Spontaneous
  Country: CO (occurrence: CO)
  Receive Date: 20250805
  Receipt Date: 20251016
  Transmission Date: 20260117
  Serious: No
  Sender: PFIZER
  Company Number: CO-PFIZER INC-202500156756

PATIENT
  Age: 6 Year
  Sex: Male
  Weight: 16.5 kg

DRUGS (6)
  1. GENOTROPIN [Suspect]
     Active Substance: SOMATROPIN
     Indication: Short stature
     Dosage: 0.6 MG, DAILY
  2. VITAMIN C [Concomitant]
     Active Substance: ASCORBIC ACID
     Indication: Immune system disorder
     Dosage: 0.5 DF, 2X/DAY
  3. VITAMIN C [Concomitant]
     Active Substance: ASCORBIC ACID
     Indication: Iron deficiency
  4. FOLIC ACID [Concomitant]
     Active Substance: FOLIC ACID
     Indication: Iron deficiency
     Dosage: 1 MG, 1X/DAY
  5. FOLIC ACID [Concomitant]
     Active Substance: FOLIC ACID
     Indication: Immune system disorder
  6. VITAMIN D NOS [Concomitant]
     Active Substance: CHOLECALCIFEROL\ERGOCALCIFEROL
     Dosage: ONCE EVERY 15 DAYS

REACTIONS (7)
  - Drug dose omission by device [Recovered/Resolved]
  - Device use issue [Recovered/Resolved]
  - Device mechanical issue [Unknown]
  - Device information output issue [Recovered/Resolved]
  - Device delivery system issue [Recovered/Resolved]
  - Off label use [Unknown]
  - Helicobacter infection [Unknown]
